FAERS Safety Report 10154466 (Version 2)
Quarter: 2014Q2

REPORT INFORMATION
  Report Type: Spontaneous
  Country: US (occurrence: US)
  Receive Date: 20140506
  Receipt Date: 20140626
  Transmission Date: 20141212
  Serious: Yes (Other)
  Sender: FDA-Public Use
  Company Number: US-JNJFOC-20140419712

PATIENT
  Age: 59 Year
  Sex: Female
  Weight: 82.56 kg

DRUGS (1)
  1. STELARA [Suspect]
     Indication: PSORIASIS
     Route: 058
     Dates: start: 201210, end: 20131118

REACTIONS (1)
  - Tonsil cancer [Not Recovered/Not Resolved]
